FAERS Safety Report 7681622-1 (Version None)
Quarter: 2011Q3

REPORT INFORMATION
  Report Type: 
  Country: None (occurrence: None)
  Receive Date: 20110812
  Receipt Date: 20110809
  Transmission Date: 20111222
  Serious: Yes (Other)
  Sender: FDA-Public Use
  Company Number: PHHY2011FR68544

PATIENT
  Age: 50 Year
  Sex: Female

DRUGS (5)
  1. VALSARTAN [Suspect]
     Indication: HYPERTENSION
     Dosage: 80 MG, ONCE PER DAY
     Dates: start: 20100101
  2. ANTIARRHYTHMICS [Concomitant]
  3. ANTIHYPERTENSIVE DRUGS [Concomitant]
  4. SECTRAL [Concomitant]
     Dosage: 1 DF, QD, 200 MG
  5. BETA BLOCKING AGENTS [Suspect]
     Dosage: UNK UKN, UNK
     Dates: start: 20100101

REACTIONS (2)
  - RENAL TUBULAR DISORDER [None]
  - ALPHA 1 MICROGLOBULIN INCREASED [None]
